FAERS Safety Report 6426174-9 (Version None)
Quarter: 2009Q4

REPORT INFORMATION
  Report Type: 
  Country: None (occurrence: None)
  Receive Date: 20091030
  Receipt Date: 20091022
  Transmission Date: 20100525
  Serious: Yes (Death, Hospitalization)
  Sender: FDA-Public Use
  Company Number: 2009EU003202

PATIENT
  Sex: Male

DRUGS (4)
  1. PROGRAF [Suspect]
     Indication: RENAL TRANSPLANT
     Dosage: 1 MG, ORAL
     Route: 048
     Dates: start: 20050501
  2. CLARITHROMYCIN [Concomitant]
  3. DELTACORTRIL [Concomitant]
  4. CLONAMOX (AMOXICILLIN TRIHYDRATE) [Concomitant]

REACTIONS (5)
  - INTERNATIONAL NORMALISED RATIO INCREASED [None]
  - LOWER RESPIRATORY TRACT INFECTION [None]
  - LUNG CANCER METASTATIC [None]
  - MALAISE [None]
  - PNEUMONIA [None]
